FAERS Safety Report 22031913 (Version 2)
Quarter: 2023Q1

REPORT INFORMATION
  Report Type: Other
  Country: BR (occurrence: None)
  Receive Date: 20230224
  Receipt Date: 20230323
  Transmission Date: 20230417
  Serious: Yes (Hospitalization, Other)
  Sender: FDA-Public Use
  Company Number: BR-ROCHE-3289178

PATIENT
  Age: 63 Year
  Sex: Male
  Weight: 74 kg

DRUGS (1)
  1. AVASTIN [Suspect]
     Active Substance: BEVACIZUMAB
     Indication: Colorectal cancer
     Dosage: MOST RECENT INFUSION 15/JAN/2023
     Route: 042
     Dates: start: 20220819

REACTIONS (5)
  - Diabetes mellitus [Unknown]
  - Gastrointestinal disorder [Recovering/Resolving]
  - Gastrointestinal stoma complication [Recovering/Resolving]
  - Hypoacusis [Recovering/Resolving]
  - Hypertension [Unknown]
